FAERS Safety Report 6278123-4 (Version None)
Quarter: 2009Q3

REPORT INFORMATION
  Report Type: 
  Country: None (occurrence: None)
  Receive Date: 20090722
  Receipt Date: 20070926
  Transmission Date: 20100115
  Serious: Yes (Hospitalization, Other)
  Sender: FDA-Public Use
  Company Number: US-ASTRAZENECA-2006UW22718

PATIENT
  Age: 39 Year
  Sex: Female
  Weight: 88.9 kg

DRUGS (24)
  1. SEROQUEL [Suspect]
     Indication: INSOMNIA
     Route: 048
     Dates: start: 19980101, end: 20060101
  2. SEROQUEL [Suspect]
     Dosage: 100-200 MG
     Route: 048
  3. LANTUS [Concomitant]
     Dosage: 20-40 UNITS
     Route: 058
  4. DEPAKOTE [Concomitant]
     Dosage: 5 MG, 100MG,250MG,500MG,1000MG FLUCTUATING
     Route: 048
  5. PREVACID [Concomitant]
     Route: 048
  6. ASPIRIN [Concomitant]
     Route: 048
  7. TORADOL [Concomitant]
     Route: 042
  8. PERCOCET [Concomitant]
     Dosage: 7.5MG/500MG- 5MG/500MG
  9. FOLIC ACID [Concomitant]
  10. PANTOPRAZOLE SODIUM [Concomitant]
     Route: 048
  11. LYRICA [Concomitant]
     Dosage: 25-100 MG
     Route: 048
  12. PHENAZOPYRIDINE HCL TAB [Concomitant]
     Route: 048
  13. PREMARIN [Concomitant]
  14. XANAX [Concomitant]
     Dosage: 0.25-0.5 MG THREE TIMES A DAY
  15. PROMETHAZINE [Concomitant]
     Route: 048
  16. PROMETHAZINE [Concomitant]
  17. RESTORIL [Concomitant]
  18. PAXIL [Concomitant]
  19. CYMBALTA [Concomitant]
     Dosage: 40-60 MG
     Route: 048
  20. TRAZODONE [Concomitant]
     Dosage: 50-150 MG
  21. AVANDIA [Concomitant]
     Dosage: 4 MG-8MG
     Route: 048
  22. VICODIN [Concomitant]
  23. MAGNESIUM HYDROXIDE TAB [Concomitant]
  24. HYDROXYZINE [Concomitant]
     Dosage: 10-50 MG

REACTIONS (5)
  - DIABETES MELLITUS [None]
  - DIABETIC HYPEROSMOLAR COMA [None]
  - DIABETIC NEUROPATHY [None]
  - HYPERGLYCAEMIA [None]
  - HYPOGLYCAEMIC ENCEPHALOPATHY [None]
